FAERS Safety Report 19952804 (Version 1)
Quarter: 2021Q4

REPORT INFORMATION
  Report Type: Spontaneous
  Country: CN (occurrence: CN)
  Receive Date: 20211013
  Receipt Date: 20211013
  Transmission Date: 20220303
  Serious: Yes (Hospitalization)
  Sender: FDA-Public Use
  Company Number: CN-BAXTER-2021BAX026428

PATIENT
  Age: 50 Year
  Sex: Female
  Weight: 63 kg

DRUGS (13)
  1. CYCLOPHOSPHAMIDE [Suspect]
     Active Substance: CYCLOPHOSPHAMIDE
     Indication: Hodgkin^s disease
     Dosage: CYCLOPHOSPHAMIDE 1.7G  INJECTION + 0.9% SODIUM CHLORIDE INJECTION 100ML
     Route: 041
     Dates: start: 20191009, end: 20191009
  2. SODIUM CHLORIDE [Suspect]
     Active Substance: SODIUM CHLORIDE
     Indication: Medication dilution
     Dosage: CYCLOPHOSPHAMIDE INJECTION 1.7G + 0.9% SODIUM CHLORIDE INJECTION 100ML
     Route: 041
     Dates: start: 20191009, end: 20191009
  3. SODIUM CHLORIDE [Suspect]
     Active Substance: SODIUM CHLORIDE
     Dosage: ETOPOSIDE INJECTION 0.26G + 0.9% SODIUM CHLORIDE INJECTION 500ML
     Route: 041
     Dates: start: 20191009, end: 20191011
  4. SODIUM CHLORIDE [Suspect]
     Active Substance: SODIUM CHLORIDE
     Dosage: VINCRISTINE SULFATE 2MG + 0.9% SODIUM CHLORIDE INJECTION 100ML
     Route: 041
     Dates: start: 20191016, end: 20191016
  5. SODIUM CHLORIDE [Suspect]
     Active Substance: SODIUM CHLORIDE
     Dosage: BLEOMYCIN HYDROCHLORIDE INJECTION 15MG + 0.9% SODIUM CHLORIDE INJECTION 5ML
     Route: 030
     Dates: start: 20191016, end: 20191016
  6. DEXTROSE [Suspect]
     Active Substance: DEXTROSE
     Indication: Medication dilution
     Dosage: PIRARUBICIN HYDROCHLORIDE 57MG + 5% GLUCOSE INJECTION 100ML
     Route: 041
     Dates: start: 20191009, end: 20191009
  7. PIRARUBICIN HYDROCHLORIDE [Suspect]
     Active Substance: PIRARUBICIN HYDROCHLORIDE
     Indication: Hodgkin^s disease
     Dosage: PIRARUBICIN HYDROCHLORIDE INJECTION 57MG + 5% GLUCOSE INJECTION 100ML
     Route: 041
     Dates: start: 20191009, end: 20191009
  8. VINCRISTINE SULFATE [Suspect]
     Active Substance: VINCRISTINE SULFATE
     Indication: Hodgkin^s disease
     Dosage: VINCRISTINE SULFATE 2MG + 0.9% SODIUM CHLORIDE INJECTION 100ML
     Route: 041
     Dates: start: 20191016, end: 20191016
  9. BLEOMYCIN HYDROCHLORIDE [Suspect]
     Active Substance: BLEOMYCIN HYDROCHLORIDE
     Indication: Hodgkin^s disease
     Dosage: BLEOMYCIN HYDROCHLORIDE INJECTION 15MG + 0.9% SODIUM CHLORIDE INJECTION 5ML
     Route: 030
     Dates: start: 20191016, end: 20191016
  10. ETOPOSIDE [Suspect]
     Active Substance: ETOPOSIDE
     Indication: Hodgkin^s disease
     Dosage: ETOPOSIDE 0.1G INJECTION + 0.9% SODIUM CHLORIDE INJECTION 500ML
     Route: 041
     Dates: start: 20191009, end: 20191011
  11. ETOPOSIDE [Suspect]
     Active Substance: ETOPOSIDE
     Dosage: ETOPOSIDE 0.1G INJECTION + 0.9% SODIUM CHLORIDE INJECTION 500ML
     Route: 041
     Dates: start: 20191009, end: 20191011
  12. ETOPOSIDE [Suspect]
     Active Substance: ETOPOSIDE
     Dosage: ETOPOSIDE 0.06G INJECTION + 0.9% SODIUM CHLORIDE INJECTION 500ML
     Route: 041
     Dates: start: 20191009, end: 20191011
  13. PREDNISONE ACETATE [Suspect]
     Active Substance: PREDNISONE ACETATE
     Indication: Hodgkin^s disease
     Route: 048
     Dates: start: 20191009, end: 20191023

REACTIONS (1)
  - Myelosuppression [Recovering/Resolving]

NARRATIVE: CASE EVENT DATE: 20191028
